FAERS Safety Report 4679784-3 (Version None)
Quarter: 2005Q2

REPORT INFORMATION
  Report Type: 
  Country: None (occurrence: None)
  Receive Date: 20050531
  Receipt Date: 20050526
  Transmission Date: 20051028
  Serious: Yes (Hospitalization)
  Sender: FDA-Public Use
  Company Number: A001-233-819

PATIENT
  Age: 63 Year
  Sex: Female
  Weight: 63.4 kg

DRUGS (4)
  1. DONEPEZIL HCL [Suspect]
     Indication: CEREBRAL DISORDER
     Dosage: DOUBLEBLIND, 1 IN 1 D, ORAL
     Route: 048
     Dates: start: 20050523, end: 20050525
  2. DONEPEZIL HCL [Suspect]
  3. FLUOXETINE [Suspect]
     Indication: DEPRESSION
     Dosage: 20 MG, ORAL
     Route: 048
     Dates: start: 20010901
  4. ACETOSALICYLIC ACID (ACETOSALICYLIC ACID) [Concomitant]

REACTIONS (5)
  - DIARRHOEA [None]
  - DRUG INTERACTION [None]
  - FATIGUE [None]
  - HEADACHE [None]
  - VOMITING [None]
